FAERS Safety Report 9016754 (Version 1)
Quarter: 2013Q1

REPORT INFORMATION
  Report Type: Spontaneous
  Country: US (occurrence: US)
  Receive Date: 20130116
  Receipt Date: 20130116
  Transmission Date: 20140127
  Serious: Yes (Other)
  Sender: FDA-Public Use
  Company Number: US-PFIZER INC-2013018604

PATIENT
  Age: 56 Year
  Sex: Male
  Weight: 108.8 kg

DRUGS (3)
  1. LYRICA [Suspect]
     Indication: NEURALGIA
     Dosage: TOTAL DAILY DOSE OF 225MG BY TAKING 75MG IN MORNING AND 150MG AT NIGHT
     Route: 048
     Dates: start: 2011, end: 2011
  2. PERCOCET [Concomitant]
     Indication: PAIN
     Dosage: UNK
  3. MORPHINE [Concomitant]
     Indication: PAIN
     Dosage: UNK

REACTIONS (4)
  - Impaired driving ability [Unknown]
  - Disturbance in attention [Unknown]
  - Memory impairment [Unknown]
  - Somnolence [Unknown]
